FAERS Safety Report 6111136-1 (Version None)
Quarter: 2009Q1

REPORT INFORMATION
  Report Type: 
  Country: None (occurrence: None)
  Receive Date: 20090309
  Receipt Date: 20090309
  Transmission Date: 20090719
  Serious: Yes (Life-Threatening)
  Sender: FDA-Public Use
  Company Number: None

PATIENT
  Age: 47 Year
  Sex: Female
  Weight: 129.7287 kg

DRUGS (1)
  1. FENTANYL-100 [Suspect]
     Indication: PAIN
     Dosage: 100MCG Q3DAYS TRANSDERMAL
     Route: 062

REACTIONS (2)
  - ACUTE RESPIRATORY FAILURE [None]
  - UNRESPONSIVE TO STIMULI [None]
